FAERS Safety Report 12497577 (Version 1)
Quarter: 2016Q2

REPORT INFORMATION
  Report Type: Report from Study
  Country: GR (occurrence: GR)
  Receive Date: 20160625
  Receipt Date: 20160625
  Transmission Date: 20160815
  Serious: Yes (Other)
  Sender: FDA-Public Use
  Company Number: PHHY2016GR084297

PATIENT
  Age: 43 Year
  Sex: Male

DRUGS (4)
  1. MEDROL [Concomitant]
     Active Substance: METHYLPREDNISOLONE
     Dosage: 24 MG, UNK
     Route: 065
  2. MEDROL [Concomitant]
     Active Substance: METHYLPREDNISOLONE
     Indication: PRODUCT USED FOR UNKNOWN INDICATION
     Dosage: 32 MG, UNK
     Route: 065
  3. METHOTREXATE [Concomitant]
     Active Substance: METHOTREXATE
     Indication: PRODUCT USED FOR UNKNOWN INDICATION
     Route: 065
  4. ILARIS [Suspect]
     Active Substance: CANAKINUMAB
     Indication: STILL^S DISEASE ADULT ONSET
     Route: 058

REACTIONS (3)
  - Musculoskeletal pain [Unknown]
  - Still^s disease adult onset [Unknown]
  - Off label use [Unknown]
